FAERS Safety Report 14679540 (Version 1)
Quarter: 2018Q1

REPORT INFORMATION
  Report Type: Report from Study
  Country: US (occurrence: US)
  Receive Date: 20180326
  Receipt Date: 20180326
  Transmission Date: 20180509
  Serious: No
  Sender: FDA-Public Use
  Company Number: PHEH2018US011501

PATIENT
  Sex: Female
  Weight: 43.9 kg

DRUGS (1)
  1. GLATOPA [Suspect]
     Active Substance: GLATIRAMER ACETATE
     Indication: PRODUCT USED FOR UNKNOWN INDICATION
     Dosage: 20 MG, QD,ROTATES INJECTION SITES
     Route: 058

REACTIONS (2)
  - Injection site scar [Not Recovered/Not Resolved]
  - Injection site swelling [Not Recovered/Not Resolved]
